FAERS Safety Report 5217981-9 (Version None)
Quarter: 2007Q1

REPORT INFORMATION
  Report Type: 
  Country: None (occurrence: None)
  Receive Date: 20061130
  Receipt Date: 20060413
  Transmission Date: 20070707
  Serious: Yes (Hospitalization)
  Sender: FDA-Public Use
  Company Number: US200607000820

PATIENT
  Age: 28 Year
  Sex: Female
  Weight: 82.1 kg

DRUGS (7)
  1. ZYPREXA [Suspect]
     Indication: DRUG USE FOR UNKNOWN INDICATION
     Dosage: UNK, UNK, UNK
     Dates: start: 20040324, end: 20050202
  2. ARIPIPRAZOLE [Concomitant]
  3. QUETIAPINE FUMARATE [Concomitant]
  4. RISPERIDONE [Concomitant]
  5. TRILEPTAL [Concomitant]
  6. PAROXETINE [Concomitant]
  7. SERTRALINE [Concomitant]

REACTIONS (1)
  - DIABETES MELLITUS [None]
